FAERS Safety Report 12632006 (Version 3)
Quarter: 2016Q3

REPORT INFORMATION
  Report Type: Spontaneous
  Country: US (occurrence: US)
  Receive Date: 20160808
  Receipt Date: 20160819
  Transmission Date: 20161109
  Serious: No
  Sender: FDA-Public Use
  Company Number: US-BEH-2016061652

PATIENT
  Sex: Female
  Weight: 54.89 kg

DRUGS (28)
  1. HIZENTRA [Suspect]
     Active Substance: HUMAN IMMUNOGLOBULIN G
     Indication: IMMUNODEFICIENCY COMMON VARIABLE
     Route: 058
  2. DIPHENHYDRAMINE. [Concomitant]
     Active Substance: DIPHENHYDRAMINE
  3. EPIPEN [Concomitant]
     Active Substance: EPINEPHRINE
  4. LMX [Concomitant]
     Active Substance: LIDOCAINE
  5. AMITRIPTYLINE [Concomitant]
     Active Substance: AMITRIPTYLINE
  6. COMPLETE MULTIVITAMIN [Concomitant]
     Active Substance: VITAMINS
  7. FLUOXETINE [Concomitant]
     Active Substance: FLUOXETINE HYDROCHLORIDE
  8. MUCINEX D [Concomitant]
     Active Substance: GUAIFENESIN\PSEUDOEPHEDRINE HYDROCHLORIDE
  9. HIZENTRA [Suspect]
     Active Substance: HUMAN IMMUNOGLOBULIN G
     Dosage: 7 G, QW
     Route: 058
     Dates: start: 20110113
  10. ETODOLAC. [Concomitant]
     Active Substance: ETODOLAC
  11. CHLORTHALIDONE. [Concomitant]
     Active Substance: CHLORTHALIDONE
  12. ARMOUR THYROID [Concomitant]
     Active Substance: THYROID, PORCINE
  13. CALCIUM VITAMIN D [Concomitant]
     Active Substance: CALCIUM\VITAMIN D
  14. HIZENTRA [Suspect]
     Active Substance: HUMAN IMMUNOGLOBULIN G
     Dosage: UNK
     Route: 058
  15. FLUCONAZOLE. [Concomitant]
     Active Substance: FLUCONAZOLE
  16. MORPHINE [Concomitant]
     Active Substance: MORPHINE
  17. OMEGA-3 KRILL OIL [Concomitant]
  18. HIZENTRA [Suspect]
     Active Substance: HUMAN IMMUNOGLOBULIN G
     Dosage: UNK
     Route: 058
  19. CIPRO [Concomitant]
     Active Substance: CIPROFLOXACIN HYDROCHLORIDE
  20. LIDOCAINE/PRILOCAINE [Concomitant]
     Active Substance: LIDOCAINE\PRILOCAINE
  21. ALPHAGAN P [Concomitant]
     Active Substance: BRIMONIDINE TARTRATE
  22. ALBUTEROL. [Concomitant]
     Active Substance: ALBUTEROL
  23. ANTIBIOTICS [Concomitant]
     Active Substance: UNSPECIFIED INGREDIENT
  24. KLOR-CON [Concomitant]
     Active Substance: POTASSIUM CHLORIDE
  25. STEROID ANTIBACTERIALS [Concomitant]
     Active Substance: UNSPECIFIED INGREDIENT
  26. NITROFURANTOIN. [Concomitant]
     Active Substance: NITROFURANTOIN
  27. LIPITOR [Concomitant]
     Active Substance: ATORVASTATIN CALCIUM
  28. ZYRTEC [Concomitant]
     Active Substance: CETIRIZINE HYDROCHLORIDE

REACTIONS (1)
  - Fungal infection [Unknown]
